FAERS Safety Report 10263435 (Version 3)
Quarter: 2014Q3

REPORT INFORMATION
  Report Type: Spontaneous
  Country: IT (occurrence: IT)
  Receive Date: 20140626
  Receipt Date: 20140924
  Transmission Date: 20150326
  Serious: Yes (Hospitalization, Other)
  Sender: FDA-Public Use
  Company Number: IT-PFIZER INC-2014174194

PATIENT
  Age: 41 Year
  Sex: Male
  Weight: 62 kg

DRUGS (5)
  1. LASIX [Concomitant]
     Active Substance: FUROSEMIDE
     Dosage: 25 MG, UNK
     Route: 048
     Dates: start: 20140501, end: 20140619
  2. COLCHICINE. [Interacting]
     Active Substance: COLCHICINE
     Indication: ARTHRALGIA
     Dosage: 2 MG, DAILY
     Route: 048
     Dates: start: 20140607, end: 20140609
  3. ALLOPURINOL. [Interacting]
     Active Substance: ALLOPURINOL
     Indication: HYPERURICAEMIA
     Dosage: 150 MG, DAILY
     Route: 048
     Dates: start: 20140605, end: 20140609
  4. BISOPROLOL HEMIFUMARATE [Concomitant]
     Active Substance: BISOPROLOL
     Dosage: 2.5 MG, UNK
     Dates: start: 20140501, end: 20140609
  5. ATORVASTATIN CALCIUM. [Suspect]
     Active Substance: ATORVASTATIN CALCIUM
     Indication: HYPERCHOLESTEROLAEMIA
     Dosage: 20 MG, DAILY
     Route: 048
     Dates: start: 20140501, end: 20140609

REACTIONS (5)
  - Leukopenia [Not Recovered/Not Resolved]
  - Ejection fraction decreased [Unknown]
  - Drug interaction [Not Recovered/Not Resolved]
  - Rhabdomyolysis [Not Recovered/Not Resolved]
  - Thrombocytopenia [Not Recovered/Not Resolved]

NARRATIVE: CASE EVENT DATE: 20140610
